FAERS Safety Report 13360097 (Version 1)
Quarter: 2017Q1

REPORT INFORMATION
  Report Type: Spontaneous
  Country: PE (occurrence: PE)
  Receive Date: 20170322
  Receipt Date: 20170322
  Transmission Date: 20170429
  Serious: Yes (Death, Other)
  Sender: FDA-Public Use
  Company Number: PE-DSJP-DSU-2017-108811

PATIENT

DRUGS (1)
  1. OLMETEC PLUS 40/12.5 [Suspect]
     Active Substance: HYDROCHLOROTHIAZIDE\OLMESARTAN MEDOXOMIL
     Indication: HYPERTENSION
     Dosage: 40/12.5 MG, QD
     Route: 048

REACTIONS (2)
  - Cerebrovascular accident [Fatal]
  - Cardiac fibrillation [Fatal]

NARRATIVE: CASE EVENT DATE: 20161217
